FAERS Safety Report 5057627-6 (Version None)
Quarter: 2006Q3

REPORT INFORMATION
  Report Type: 
  Country: None (occurrence: None)
  Receive Date: 20060721
  Receipt Date: 20060104
  Transmission Date: 20061208
  Serious: No
  Sender: FDA-Public Use
  Company Number: US-GLAXOSMITHKLINE-A0587733A

PATIENT
  Age: 83 Year
  Sex: Female

DRUGS (5)
  1. AVANDIA [Suspect]
     Dosage: 8MG PER DAY
     Route: 048
  2. METFORMIN [Suspect]
     Dosage: 500MG TWICE PER DAY
     Route: 048
  3. LIPITOR [Concomitant]
  4. DIOVAN [Concomitant]
  5. NORVASC [Concomitant]

REACTIONS (7)
  - ABDOMINAL PAIN UPPER [None]
  - DIARRHOEA [None]
  - EAR CONGESTION [None]
  - FATIGUE [None]
  - NASAL CONGESTION [None]
  - PALPITATIONS [None]
  - WEIGHT INCREASED [None]
